FAERS Safety Report 7964864-7 (Version None)
Quarter: 2011Q4

REPORT INFORMATION
  Report Type: 
  Country: None (occurrence: None)
  Receive Date: 20111208
  Receipt Date: 20111208
  Transmission Date: 20120403
  Serious: Yes (Other)
  Sender: FDA-Public Use
  Company Number: None

PATIENT
  Age: 64 Year
  Sex: Male
  Weight: 86.182 kg

DRUGS (1)
  1. CHANTIX [Suspect]
     Indication: SMOKING CESSATION THERAPY
     Route: 048
     Dates: start: 20110917, end: 20111130

REACTIONS (5)
  - ANGER [None]
  - FORMICATION [None]
  - EYE PRURITUS [None]
  - ABNORMAL BEHAVIOUR [None]
  - AGGRESSION [None]
